FAERS Safety Report 5042531-X (Version None)
Quarter: 2006Q2

REPORT INFORMATION
  Report Type: 
  Country: None (occurrence: None)
  Receive Date: 20060627
  Receipt Date: 20060616
  Transmission Date: 20061013
  Serious: Yes (Death)
  Sender: FDA-Public Use
  Company Number: 2006-01494

PATIENT
  Age: 37 Year
  Sex: Male

DRUGS (5)
  1. VELCADE [Suspect]
     Indication: MULTIPLE MYELOMA
     Dosage: INTRAVENOUS
     Route: 042
     Dates: start: 20060418, end: 20060421
  2. DEXRAZOXANE [Concomitant]
  3. CEFTAZIDIME PENTAHYDRATE [Concomitant]
  4. CIPROFLOXACIN HCL [Concomitant]
  5. AUGMENTIN '125' [Concomitant]

REACTIONS (1)
  - SUDDEN DEATH [None]
